FAERS Safety Report 8317643-5 (Version None)
Quarter: 2012Q2

REPORT INFORMATION
  Report Type: 
  Country: None (occurrence: None)
  Receive Date: 20120427
  Receipt Date: 20090806
  Transmission Date: 20120825
  Serious: No
  Sender: FDA-Public Use
  Company Number: US-TEVA-2009007468

PATIENT
  Sex: Female
  Weight: 45.854 kg

DRUGS (2)
  1. YAZ [Concomitant]
     Indication: CONTRACEPTION
  2. NUVIGIL [Suspect]
     Indication: NARCOLEPSY
     Dosage: 100 MILLIGRAM;
     Route: 048
     Dates: start: 20090601, end: 20090601

REACTIONS (1)
  - RASH [None]
